FAERS Safety Report 8133908-4 (Version None)
Quarter: 2012Q1

REPORT INFORMATION
  Report Type: 
  Country: None (occurrence: None)
  Receive Date: 20120213
  Receipt Date: 20120207
  Transmission Date: 20120608
  Serious: Yes (Hospitalization)
  Sender: FDA-Public Use
  Company Number: BR-ASTRAZENECA-2010SE58976

PATIENT
  Age: 64 Year
  Sex: Male

DRUGS (9)
  1. BUDESONIDE [Suspect]
     Route: 045
     Dates: start: 20101116
  2. LOSARTAN POTASSIUM [Concomitant]
     Indication: HYPERTENSION
     Route: 048
     Dates: start: 20050101
  3. SPIRIVA [Concomitant]
     Indication: BRONCHITIS
     Route: 048
     Dates: start: 20050101
  4. FORMOTEROL FUMARATE [Concomitant]
     Indication: BRONCHITIS
     Route: 048
     Dates: start: 20050101
  5. BEROTEC [Concomitant]
     Indication: BRONCHITIS
     Route: 048
     Dates: start: 20050101
  6. CETIRIZINE HYDROCLORIDE [Concomitant]
     Route: 048
     Dates: start: 20101116
  7. FORMOTEROL FUMARATE [Concomitant]
     Indication: ASTHMA
     Route: 048
     Dates: start: 20050101
  8. SPIRIVA [Concomitant]
     Indication: ASTHMA
     Route: 048
     Dates: start: 20050101
  9. DUOVENT [Suspect]
     Indication: ASTHMA
     Route: 048
     Dates: start: 20050101

REACTIONS (1)
  - PNEUMONIA [None]
